FAERS Safety Report 5328033-1 (Version None)
Quarter: 2007Q2

REPORT INFORMATION
  Report Type: 
  Country: None (occurrence: None)
  Receive Date: 20070514
  Receipt Date: 20070509
  Transmission Date: 20071010
  Serious: Yes (Other)
  Sender: FDA-Public Use
  Company Number: 013205

PATIENT
  Age: 16 Year
  Sex: Male

DRUGS (1)
  1. ADDERALL 10 [Suspect]
     Dosage: 240 MG OVER 36 HOURS, ORAL
     Route: 048

REACTIONS (7)
  - ACCIDENTAL OVERDOSE [None]
  - CELL DEATH [None]
  - DRUG DISPENSING ERROR [None]
  - HALLUCINATION [None]
  - NERVOUS SYSTEM DISORDER [None]
  - NEUROTOXICITY [None]
  - PSYCHOTIC DISORDER [None]
